FAERS Safety Report 9714784 (Version 1)
Quarter: 2013Q4

REPORT INFORMATION
  Report Type: Spontaneous
  Country: ES (occurrence: ES)
  Receive Date: 20131126
  Receipt Date: 20131126
  Transmission Date: 20140711
  Serious: Yes (Other)
  Sender: FDA-Public Use
  Company Number: ES-TAKEDA-2013TUS002525

PATIENT
  Sex: 0

DRUGS (1)
  1. ADENURIC [Suspect]
     Indication: HYPERURICAEMIA
     Dosage: UNK (1 D)
     Route: 048
     Dates: start: 20130313, end: 20130513

REACTIONS (1)
  - Atrioventricular block second degree [Unknown]
